FAERS Safety Report 25919190 (Version 1)
Quarter: 2025Q4

REPORT INFORMATION
  Report Type: Spontaneous
  Country: US (occurrence: None)
  Receive Date: 20251013
  Receipt Date: 20251013
  Transmission Date: 20260117
  Serious: Yes (Hospitalization)
  Sender: FDA-CTU
  Company Number: None

PATIENT
  Age: 67 Year
  Sex: Female
  Weight: 51.4 kg

DRUGS (11)
  1. VERZENIO [Suspect]
     Active Substance: ABEMACICLIB
     Indication: Breast cancer female
     Dosage: 150 MG 1 TABLET BID ORAL
     Route: 048
     Dates: start: 20251004
  2. COMPAZINE [Concomitant]
     Active Substance: PROCHLORPERAZINE MALEATE
  3. ZOFRAN [Concomitant]
     Active Substance: ONDANSETRON HYDROCHLORIDE
  4. THYROID [Concomitant]
     Active Substance: LEVOTHYROXINE\LIOTHYRONINE
  5. ARIMIDEX [Concomitant]
     Active Substance: ANASTROZOLE
  6. EZETIMIBE [Concomitant]
     Active Substance: EZETIMIBE
  7. ESTRACE [Concomitant]
     Active Substance: ESTRADIOL
  8. LEVOTHYROXINE [Concomitant]
     Active Substance: LEVOTHYROXINE
  9. LOPERAMIDE [Concomitant]
     Active Substance: LOPERAMIDE
  10. OLANZAPINE [Concomitant]
     Active Substance: OLANZAPINE
  11. TRAMADOL [Concomitant]
     Active Substance: TRAMADOL

REACTIONS (5)
  - Blood calcium increased [None]
  - Dehydration [None]
  - Renal impairment [None]
  - Hypophagia [None]
  - Therapy change [None]

NARRATIVE: CASE EVENT DATE: 20251009
